FAERS Safety Report 13125879 (Version 2)
Quarter: 2017Q1

REPORT INFORMATION
  Report Type: Spontaneous
  Country: US (occurrence: US)
  Receive Date: 20170118
  Receipt Date: 20170306
  Transmission Date: 20170428
  Serious: No
  Sender: FDA-Public Use
  Company Number: US-009507513-1701USA007891

PATIENT
  Sex: Male
  Weight: 105.67 kg

DRUGS (1)
  1. PRINIVIL [Suspect]
     Active Substance: LISINOPRIL
     Indication: HYPERTENSION
     Dosage: QD
     Route: 048

REACTIONS (2)
  - Cough [Unknown]
  - Drug hypersensitivity [Unknown]
